FAERS Safety Report 17392108 (Version 7)
Quarter: 2020Q2

REPORT INFORMATION
  Report Type: Report from Study
  Country: DE (occurrence: DE)
  Receive Date: 20200207
  Receipt Date: 20200429
  Transmission Date: 20200713
  Serious: Yes (Hospitalization)
  Sender: FDA-Public Use
  Company Number: DE-ROCHE-2516180

PATIENT
  Age: 56 Year
  Sex: Female
  Weight: 62 kg

DRUGS (10)
  1. COBIMETINIB. [Suspect]
     Active Substance: COBIMETINIB
     Route: 048
     Dates: start: 20191223, end: 20200116
  2. VEMURAFENIB. [Suspect]
     Active Substance: VEMURAFENIB
     Dosage: ON 16/JAN/2020, SHE RECEIVED MOST RECENT DOSE OF ORAL ZELBORAF 960 MG TWICE IN A DAY (480 MG)
     Route: 048
     Dates: start: 20191223, end: 20200116
  3. PEMBROLIZUMAB. [Concomitant]
     Active Substance: PEMBROLIZUMAB
     Dosage: ADJUVENT TREATMENT (11 CYCLES)
     Route: 065
  4. COBIMETINIB. [Suspect]
     Active Substance: COBIMETINIB
     Dosage: 16/JAN/2020. SHE RECEIVED MOST RECENT DOES OF ORAL COTELLIC AT 40 MG ONCE IN A DAY.
     Route: 048
     Dates: start: 20200116, end: 20200116
  5. RINGER^S SOLUTION [CALCIUM CHLORIDE;POTASSIUM CHLORIDE;SODIUM CHLORIDE [Concomitant]
     Route: 042
     Dates: start: 20200102, end: 20200106
  6. FOSTER [Concomitant]
     Active Substance: BECLOMETHASONE\FORMOTEROL
     Indication: ASTHMA
     Route: 048
  7. VEMURAFENIB. [Suspect]
     Active Substance: VEMURAFENIB
     Indication: MALIGNANT MELANOMA
     Dosage: ON 16/JAN/2020, SHE RECEIVED MOST RECENT DOSE OF ORAL ZELBORAF 960 MG TWICE IN A DAY (480 MG)
     Route: 048
     Dates: start: 20191223, end: 20200101
  8. VEMURAFENIB. [Suspect]
     Active Substance: VEMURAFENIB
     Dosage: ON 16/JAN/2020, SHE RECEIVED MOST RECENT DOSE OF ORAL ZELBORAF 960 MG TWICE IN A DAY (480 MG)
     Route: 048
     Dates: start: 20200116, end: 20200116
  9. L-THYROXINE [LEVOTHYROXINE] [Concomitant]
     Active Substance: LEVOTHYROXINE
     Indication: HYPOTHYROIDISM
     Route: 048
  10. COBIMETINIB. [Suspect]
     Active Substance: COBIMETINIB
     Indication: MALIGNANT MELANOMA
     Dosage: 16/JAN/2020. SHE RECEIVED MOST RECENT DOES OF ORAL COTELLIC AT 40 MG ONCE IN A DAY.
     Route: 048
     Dates: start: 20191223, end: 20200101

REACTIONS (6)
  - Gastroenteritis [Recovering/Resolving]
  - Pyrexia [Unknown]
  - Gastroenteritis [Recovered/Resolved]
  - Diarrhoea [Recovered/Resolved]
  - Chills [Unknown]
  - Eczema [Unknown]

NARRATIVE: CASE EVENT DATE: 20191229
